FAERS Safety Report 17594322 (Version 3)
Quarter: 2020Q2

REPORT INFORMATION
  Report Type: Spontaneous
  Country: US (occurrence: US)
  Receive Date: 20200327
  Receipt Date: 20200602
  Transmission Date: 20200713
  Serious: Yes (Other)
  Sender: FDA-Public Use
  Company Number: US-GILEAD-2020-0456890

PATIENT
  Age: 35 Year
  Sex: Male

DRUGS (52)
  1. COMPLERA [Suspect]
     Active Substance: EMTRICITABINE\RILPIVIRINE HYDROCHLORIDE\TENOFOVIR DISOPROXIL FUMARATE
     Indication: HIV INFECTION
     Dosage: UNK
     Route: 065
     Dates: start: 201407, end: 201908
  2. PREZISTA [Concomitant]
     Active Substance: DARUNAVIR ETHANOLATE
  3. LOPERAMIDE [Concomitant]
     Active Substance: LOPERAMIDE
  4. HYDROXYZINE HCL [Concomitant]
     Active Substance: HYDROXYZINE HYDROCHLORIDE
  5. NAPROXEN. [Concomitant]
     Active Substance: NAPROXEN
  6. PREDNISONE. [Concomitant]
     Active Substance: PREDNISONE
  7. ONDANSETRON [Concomitant]
     Active Substance: ONDANSETRON
  8. CYCLOBENZAPRINE. [Concomitant]
     Active Substance: CYCLOBENZAPRINE
  9. SENOKOT [Concomitant]
     Active Substance: SENNOSIDES
  10. CIPROFLOXACIN. [Concomitant]
     Active Substance: CIPROFLOXACIN
  11. PREMARIN [Concomitant]
     Active Substance: ESTROGENS, CONJUGATED
  12. PROMETHAZINE [Concomitant]
     Active Substance: PROMETHAZINE HYDROCHLORIDE
  13. CALCIUM + VITAMIN D3 [Concomitant]
     Active Substance: CALCIUM\CHOLECALCIFEROL
  14. ACETAMINOPHEN AND CODEINE [Concomitant]
     Active Substance: ACETAMINOPHEN\CODEINE PHOSPHATE
  15. PAROXETINE HCL [Concomitant]
     Active Substance: PAROXETINE HYDROCHLORIDE
  16. VIVELLE-DOT [Concomitant]
     Active Substance: ESTRADIOL
  17. POLYETHYLENE GLYCOL [Concomitant]
     Active Substance: POLYETHYLENE GLYCOLS
  18. MEGESTROL [Concomitant]
     Active Substance: MEGESTROL
  19. CEFADROXIL. [Concomitant]
     Active Substance: CEFADROXIL
  20. NORVIR [Concomitant]
     Active Substance: RITONAVIR
  21. PATANOL [Concomitant]
     Active Substance: OLOPATADINE HYDROCHLORIDE
  22. LYRICA [Concomitant]
     Active Substance: PREGABALIN
  23. MELOXICAM. [Concomitant]
     Active Substance: MELOXICAM
  24. LIDOCAINE PRILOCAINE BIOGARAN [Concomitant]
  25. OS-CAL + D [Concomitant]
  26. DOCUSATE [Concomitant]
     Active Substance: DOCUSATE
  27. SYMBICORT [Concomitant]
     Active Substance: BUDESONIDE\FORMOTEROL FUMARATE DIHYDRATE
  28. PROAIR HFA [Concomitant]
     Active Substance: ALBUTEROL SULFATE
  29. ESTRADIOL. [Concomitant]
     Active Substance: ESTRADIOL
  30. OXYCODONE AND ACETAMINOPHEN [Concomitant]
     Active Substance: ACETAMINOPHEN\OXYCODONE HYDROCHLORIDE
  31. VITAMIN D2 [Concomitant]
     Active Substance: ERGOCALCIFEROL
  32. VENTOLIN HFA [Concomitant]
     Active Substance: ALBUTEROL SULFATE
  33. OXYCODONE HYDROCHLORIDE. [Concomitant]
     Active Substance: OXYCODONE HYDROCHLORIDE
  34. DIAZEPAM. [Concomitant]
     Active Substance: DIAZEPAM
  35. AZITHROMYCIN ANHYDROUS. [Concomitant]
     Active Substance: AZITHROMYCIN ANHYDROUS
  36. AMOXICILLIN + CLAV. POTASSIUM [Concomitant]
     Active Substance: AMOXICILLIN\CLAVULANATE POTASSIUM
  37. TRUVADA [Suspect]
     Active Substance: EMTRICITABINE\TENOFOVIR DISOPROXIL FUMARATE
     Indication: HIV INFECTION
     Dosage: 1 DOSAGE FORM (200-300 MG), QD
     Route: 048
     Dates: start: 200908, end: 201407
  38. DOXYCYCLINE. [Concomitant]
     Active Substance: DOXYCYCLINE
  39. RISPERIDONE. [Concomitant]
     Active Substance: RISPERIDONE
  40. BUPROPION HCL [Concomitant]
     Active Substance: BUPROPION HYDROCHLORIDE
  41. CEPHALEXIN [CEFALEXIN] [Concomitant]
     Active Substance: CEPHALEXIN
  42. FLOVENT HFA [Concomitant]
     Active Substance: FLUTICASONE PROPIONATE
  43. LUPRON DEPOT [Concomitant]
     Active Substance: LEUPROLIDE ACETATE
  44. ODEFSEY [Concomitant]
     Active Substance: EMTRICITABINE\RILPIVIRINE HYDROCHLORIDE\TENOFOVIR ALAFENAMIDE FUMARATE
  45. SPIRONOLACTONE. [Concomitant]
     Active Substance: SPIRONOLACTONE
  46. DELESTROGEN [Concomitant]
     Active Substance: ESTRADIOL VALERATE
  47. IBUPROFEN. [Concomitant]
     Active Substance: IBUPROFEN
  48. LEVOTHYROXINE. [Concomitant]
     Active Substance: LEVOTHYROXINE
  49. TEMAZEPAM. [Concomitant]
     Active Substance: TEMAZEPAM
  50. GABAPENTIN. [Concomitant]
     Active Substance: GABAPENTIN
  51. QVAR [Concomitant]
     Active Substance: BECLOMETHASONE DIPROPIONATE
  52. SULFAMETHOXAZOLE AND TRIMETHOPRIM [Concomitant]
     Active Substance: SULFAMETHOXAZOLE\TRIMETHOPRIM

REACTIONS (4)
  - Osteonecrosis [Not Recovered/Not Resolved]
  - Osteoporosis [Not Recovered/Not Resolved]
  - Chronic kidney disease [Not Recovered/Not Resolved]
  - Bone density decreased [Unknown]

NARRATIVE: CASE EVENT DATE: 201111
